FAERS Safety Report 11559279 (Version 1)
Quarter: 2015Q3

REPORT INFORMATION
  Report Type: Report from Study
  Country: US (occurrence: US)
  Receive Date: 20150928
  Receipt Date: 20150928
  Transmission Date: 20151125
  Serious: Yes (Hospitalization)
  Sender: FDA-Public Use
  Company Number: PHEH2015US018875

PATIENT
  Sex: Male

DRUGS (2)
  1. ILARIS [Suspect]
     Active Substance: CANAKINUMAB
     Dosage: 0.5 MG, QMO
     Route: 058
  2. ILARIS [Suspect]
     Active Substance: CANAKINUMAB
     Dosage: 0.75 MG, QMO
     Route: 058
     Dates: start: 20150305

REACTIONS (4)
  - Joint swelling [Unknown]
  - Arthritis [Unknown]
  - Histiocytosis haematophagic [Unknown]
  - Malaise [Recovered/Resolved]
